FAERS Safety Report 5232301-1 (Version None)
Quarter: 2007Q1

REPORT INFORMATION
  Report Type: 
  Country: None (occurrence: None)
  Receive Date: 20070205
  Receipt Date: 20070129
  Transmission Date: 20070707
  Serious: Yes (Hospitalization)
  Sender: FDA-Public Use
  Company Number: 225608

PATIENT
  Age: 72 Year
  Sex: Male

DRUGS (4)
  1. GRTPA (ALTEPLASE) PWDR + SOLVENT, INFUSION SOLN [Suspect]
     Indication: CEREBRAL INFARCTION
     Dosage: 24 MIU, SINGLE, INTRAVENOUS
     Route: 042
     Dates: start: 20060502, end: 20060502
  2. CEFTAZIDIME [Concomitant]
  3. RADICUT (EDARAVONE) [Concomitant]
  4. DILTIAZEM HCL [Concomitant]

REACTIONS (7)
  - ACTIVATED PARTIAL THROMBOPLASTIN TIME PROLONGED [None]
  - CEREBRAL INFARCTION [None]
  - CONDITION AGGRAVATED [None]
  - DEPRESSED LEVEL OF CONSCIOUSNESS [None]
  - INFECTION [None]
  - INTERNATIONAL NORMALISED RATIO DECREASED [None]
  - PNEUMONIA ASPIRATION [None]
